FAERS Safety Report 8063243-4 (Version None)
Quarter: 2012Q1

REPORT INFORMATION
  Report Type: 
  Country: None (occurrence: None)
  Receive Date: 20120123
  Receipt Date: 20120118
  Transmission Date: 20120608
  Serious: Yes (Death)
  Sender: FDA-Public Use
  Company Number: PHHY2010IT92465

PATIENT

DRUGS (1)
  1. NILOTINIB [Suspect]
     Dosage: 300 MG, BID

REACTIONS (1)
  - SMALL INTESTINAL OBSTRUCTION [None]
